FAERS Safety Report 25310953 (Version 1)
Quarter: 2025Q2

REPORT INFORMATION
  Report Type: Spontaneous
  Country: US (occurrence: US)
  Receive Date: 20250514
  Receipt Date: 20250514
  Transmission Date: 20250717
  Serious: No
  Sender: BIOCON
  Company Number: US-BIOCON-BCN-2025-000151

PATIENT
  Age: 64 Year
  Sex: Female
  Weight: 58.05 kg

DRUGS (3)
  1. ATORVASTATIN [Suspect]
     Active Substance: ATORVASTATIN
     Indication: Blood cholesterol abnormal
     Dosage: 2 TIMES A DAY; STARTED 7 YEARS AGO
     Dates: end: 2025
  2. ATORVASTATIN [Suspect]
     Active Substance: ATORVASTATIN
     Dosage: DOSE WAS INCREASED SINCE JAN-2025 OR FEB-2025; 2 TIMES A DAY; PRESCRIBED DATE: 23-FEB-2025
     Dates: start: 2025
  3. TRAZODONE [Concomitant]
     Active Substance: TRAZODONE HYDROCHLORIDE
     Indication: Sleep disorder
     Dates: start: 2017

REACTIONS (1)
  - Gastrooesophageal reflux disease [Not Recovered/Not Resolved]
